FAERS Safety Report 10510591 (Version 1)
Quarter: 2014Q4

REPORT INFORMATION
  Report Type: Spontaneous
  Country: BE (occurrence: None)
  Receive Date: 20141008
  Receipt Date: 20141008
  Transmission Date: 20150528
  Serious: Yes (Death, Hospitalization)
  Sender: FDA-Public Use
  Company Number: 2014SCAL000143

PATIENT
  Age: 75 Year
  Sex: Female

DRUGS (12)
  1. SIMVASTATINE EG (SIMVASTATIN) [Concomitant]
  2. PIRACETAM EG (PIRACETAM) [Concomitant]
  3. TEMESTA /00273201/ (LORAZEPAM) [Concomitant]
  4. IMOVANE [Concomitant]
     Active Substance: ZOPICLONE
  5. MESULID (NIMESULIDE) [Suspect]
     Active Substance: NIMESULIDE
     Indication: ANALGESIC THERAPY
     Dosage: OD
  6. EFEXOR-EXEL (VENLAFAXINE HYDROCHLORIDE) [Concomitant]
  7. CYMBALTA [Concomitant]
     Active Substance: DULOXETINE HYDROCHLORIDE
  8. EMCONCOR (BISOPROLOL FUMARATE) [Concomitant]
     Active Substance: BISOPROLOL FUMARATE
  9. NESTROLAN (TRAZODONE HYDROCHLORIDE) [Concomitant]
  10. GLUCOPHAGE [Concomitant]
     Active Substance: METFORMIN HYDROCHLORIDE
  11. XANAX [Concomitant]
     Active Substance: ALPRAZOLAM
  12. LITHIUM CARBONATE. [Suspect]
     Active Substance: LITHIUM CARBONATE
     Indication: PRODUCT USED FOR UNKNOWN INDICATION

REACTIONS (15)
  - Blood thyroid stimulating hormone increased [None]
  - Aphasia [None]
  - Gait disturbance [None]
  - Restlessness [None]
  - Drug interaction [None]
  - Ataxia [None]
  - Acute coronary syndrome [None]
  - Confusional state [None]
  - Blood creatinine increased [None]
  - Blood urea increased [None]
  - Disorientation [None]
  - Tremor [None]
  - Cardiogenic shock [None]
  - Fall [None]
  - Toxicity to various agents [None]
